FAERS Safety Report 8062255-4 (Version None)
Quarter: 2012Q1

REPORT INFORMATION
  Report Type: 
  Country: None (occurrence: None)
  Receive Date: 20120123
  Receipt Date: 20120114
  Transmission Date: 20120608
  Serious: No
  Sender: FDA-Public Use
  Company Number: US-B.I. PHARMACEUTICALS,INC./RIDGEFIELD-2011-BP-01701BP

PATIENT
  Sex: Male
  Weight: 100.24 kg

DRUGS (2)
  1. MIRAPEX [Suspect]
     Dosage: 4.5 MG
     Dates: start: 20100716
  2. MIRAPEX [Suspect]
     Indication: PARKINSON'S DISEASE
     Route: 048
     Dates: start: 19970701

REACTIONS (4)
  - PATHOLOGICAL GAMBLING [None]
  - EMOTIONAL DISTRESS [None]
  - OBSESSIVE-COMPULSIVE DISORDER [None]
  - PAIN [None]
